FAERS Safety Report 5505189-9 (Version None)
Quarter: 2007Q4

REPORT INFORMATION
  Report Type: 
  Country: None (occurrence: None)
  Receive Date: 20071102
  Receipt Date: 20071029
  Transmission Date: 20080405
  Serious: Yes (Other)
  Sender: FDA-Public Use
  Company Number: US-ASTRAZENECA-2007UW25081

PATIENT
  Age: 58 Year
  Sex: Female
  Weight: 74.8 kg

DRUGS (4)
  1. ARIMIDEX [Suspect]
     Indication: BREAST CANCER
     Route: 048
  2. LEXAPRO [Concomitant]
  3. XANAX [Concomitant]
  4. VITAMIN B6 [Concomitant]

REACTIONS (2)
  - CARPAL TUNNEL SYNDROME [None]
  - TRIGGER FINGER [None]
